FAERS Safety Report 7577851-8 (Version None)
Quarter: 2011Q2

REPORT INFORMATION
  Report Type: 
  Country: None (occurrence: None)
  Receive Date: 20110628
  Receipt Date: 20110616
  Transmission Date: 20111010
  Serious: Yes (Hospitalization, Other)
  Sender: FDA-Public Use
  Company Number: PHFR2010GB06117

PATIENT
  Sex: Male

DRUGS (3)
  1. CLOZAPINE [Suspect]
     Dosage: UNK MG, UNK
     Route: 048
     Dates: start: 20071130
  2. CLOZAPINE [Suspect]
     Indication: SCHIZOPHRENIA
     Dosage: UNK MG, UNK
     Route: 048
     Dates: start: 19970101
  3. CLOZAPINE [Suspect]
     Dosage: UNK
     Route: 048
     Dates: start: 20071130

REACTIONS (5)
  - TUBERCULOSIS [None]
  - MALAISE [None]
  - HEPATITIS C [None]
  - CHEST DISCOMFORT [None]
  - LIVER FUNCTION TEST ABNORMAL [None]
